FAERS Safety Report 9869825 (Version 2)
Quarter: 2014Q1

REPORT INFORMATION
  Report Type: Report from Study
  Country: US (occurrence: US)
  Receive Date: 20140205
  Receipt Date: 20140207
  Transmission Date: 20141002
  Serious: Yes (Death)
  Sender: FDA-Public Use
  Company Number: US-ROCHE-1343018

PATIENT
  Age: 81 Year
  Sex: Male
  Weight: 91.25 kg

DRUGS (2)
  1. VALCYTE [Suspect]
     Indication: CYTOMEGALOVIRUS VIRAEMIA
     Route: 048
     Dates: start: 20130919, end: 20140120
  2. AMPHOTERICIN B [Concomitant]
     Indication: PNEUMONIA FUNGAL
     Route: 042
     Dates: start: 20140102, end: 20140201

REACTIONS (3)
  - Pneumonia fungal [Fatal]
  - Pneumonia pseudomonal [Fatal]
  - Acute myocardial infarction [Fatal]
